FAERS Safety Report 14145423 (Version 3)
Quarter: 2021Q2

REPORT INFORMATION
  Report Type: Spontaneous
  Country: IL (occurrence: IL)
  Receive Date: 20171031
  Receipt Date: 20210524
  Transmission Date: 20210716
  Serious: Yes (Death, Hospitalization, Other)
  Sender: FDA-Public Use
  Company Number: IL-PFIZER INC-2017463859

PATIENT
  Age: 73 Year

DRUGS (1)
  1. GEMCITABINE HYDROCHLORIDE. [Suspect]
     Active Substance: GEMCITABINE HYDROCHLORIDE
     Indication: TRANSITIONAL CELL CARCINOMA
     Dosage: 1580 MG (1G/M2), SINGLE

REACTIONS (1)
  - Toxic epidermal necrolysis [Fatal]
